FAERS Safety Report 25136299 (Version 3)
Quarter: 2025Q2

REPORT INFORMATION
  Report Type: Spontaneous
  Country: IT (occurrence: IT)
  Receive Date: 20250328
  Receipt Date: 20250426
  Transmission Date: 20250716
  Serious: Yes (Death, Life-Threatening, Hospitalization)
  Sender: AMGEN
  Company Number: None

PATIENT
  Age: 62 Year
  Sex: Female

DRUGS (9)
  1. SOTORASIB [Suspect]
     Active Substance: SOTORASIB
     Indication: Lung neoplasm
     Dosage: 960 MILLIGRAM, QD
     Route: 048
     Dates: start: 20250206, end: 20250310
  2. MORPHINE SULFATE [Suspect]
     Active Substance: MORPHINE SULFATE
     Indication: Product used for unknown indication
     Route: 065
  3. NALOXONE HYDROCHLORIDE\OXYCODONE HYDROCHLORIDE [Concomitant]
     Active Substance: NALOXONE HYDROCHLORIDE\OXYCODONE HYDROCHLORIDE
  4. PREDNISONE [Concomitant]
     Active Substance: PREDNISONE
  5. URSODIOL [Concomitant]
     Active Substance: URSODIOL
     Route: 065
  6. DEXAMETHASONE [Concomitant]
     Active Substance: DEXAMETHASONE
     Dosage: 8 MILLIGRAM, QD
     Route: 065
  7. CARBOPLATIN [Concomitant]
     Active Substance: CARBOPLATIN
     Route: 065
     Dates: start: 202406, end: 202409
  8. PEMETREXED [Concomitant]
     Active Substance: PEMETREXED
     Route: 065
     Dates: start: 202406, end: 202409
  9. PEMBROLIZUMAB [Concomitant]
     Active Substance: PEMBROLIZUMAB
     Route: 065
     Dates: end: 202501

REACTIONS (3)
  - Non-small cell lung cancer [Fatal]
  - Hepatitis acute [Recovering/Resolving]
  - Jaundice [Recovering/Resolving]

NARRATIVE: CASE EVENT DATE: 20250310
